FAERS Safety Report 11474141 (Version 1)
Quarter: 2015Q3

REPORT INFORMATION
  Report Type: Spontaneous
  Country: US (occurrence: None)
  Receive Date: 20150908
  Receipt Date: 20150908
  Transmission Date: 20151125
  Serious: No
  Sender: FDA-Public Use
  Company Number: None

PATIENT
  Age: 19 Year
  Sex: Female

DRUGS (5)
  1. PROBIOTIC DAILY [Concomitant]
  2. IBUPROFEN PRN [Concomitant]
  3. ACETAMINOPHEN. [Concomitant]
     Active Substance: ACETAMINOPHEN
  4. ANTI NAUSEA MED [Suspect]
     Active Substance: UNSPECIFIED INGREDIENT
     Indication: NAUSEA
     Dosage: 2 DOSES INTO A VEIN
  5. BENADRYL [Suspect]
     Active Substance: DIPHENHYDRAMINE HYDROCHLORIDE
     Indication: HEADACHE
     Dosage: INTO A VEIN

REACTIONS (1)
  - Circumstance or information capable of leading to medication error [None]

NARRATIVE: CASE EVENT DATE: 20150901
